FAERS Safety Report 8372033-4 (Version None)
Quarter: 2012Q2

REPORT INFORMATION
  Report Type: 
  Country: None (occurrence: None)
  Receive Date: 20120518
  Receipt Date: 20120515
  Transmission Date: 20120825
  Serious: Yes (Other)
  Sender: FDA-Public Use
  Company Number: US-ALLERGAN-1206885US

PATIENT
  Age: 37 Year
  Sex: Female

DRUGS (2)
  1. BOTULINUM TOXIN TYPE A [Suspect]
     Indication: BACK PAIN
  2. BOTULINUM TOXIN TYPE A [Suspect]
     Indication: NECK PAIN
     Route: 030

REACTIONS (3)
  - DYSPHAGIA [None]
  - SWOLLEN TONGUE [None]
  - HYPOAESTHESIA ORAL [None]
